FAERS Safety Report 9807967 (Version 3)
Quarter: 2014Q1

REPORT INFORMATION
  Report Type: Spontaneous
  Country: DE (occurrence: DE)
  Receive Date: 20140110
  Receipt Date: 20140122
  Transmission Date: 20141002
  Serious: Yes (Other)
  Sender: FDA-Public Use
  Company Number: DE-PFIZER INC-2014006630

PATIENT
  Sex: Male

DRUGS (1)
  1. PANTOZOL [Suspect]
     Dosage: 20 MG, AS NEEDED
     Route: 048
     Dates: start: 201312

REACTIONS (1)
  - Vitreous detachment [Unknown]
